FAERS Safety Report 12949800 (Version 2)
Quarter: 2016Q4

REPORT INFORMATION
  Report Type: Spontaneous
  Country: JP (occurrence: JP)
  Receive Date: 20161117
  Receipt Date: 20161205
  Transmission Date: 20170207
  Serious: Yes (Disabling)
  Sender: FDA-Public Use
  Company Number: PHJP2016JP033169

PATIENT
  Age: 68 Year
  Sex: Male

DRUGS (2)
  1. NEORAL [Suspect]
     Active Substance: CYCLOSPORINE
     Indication: PEMPHIGOID
     Dosage: 120 MG, QD (20 MG/DAY AND 100 MG/DAY)
     Route: 048
     Dates: start: 20161004
  2. LYRICA [Suspect]
     Active Substance: PREGABALIN
     Indication: PRODUCT USED FOR UNKNOWN INDICATION
     Dosage: 150 MG, QD
     Route: 048
     Dates: end: 20161124

REACTIONS (3)
  - Product use issue [Unknown]
  - Optic nerve disorder [Not Recovered/Not Resolved]
  - Visual acuity reduced [Not Recovered/Not Resolved]

NARRATIVE: CASE EVENT DATE: 20161107
